FAERS Safety Report 7279757-0 (Version None)
Quarter: 2011Q1

REPORT INFORMATION
  Report Type: 
  Country: None (occurrence: None)
  Receive Date: 20110208
  Receipt Date: 20110201
  Transmission Date: 20110831
  Serious: Yes (Other)
  Sender: FDA-Public Use
  Company Number: AU-PFIZER INC-2011024447

PATIENT
  Age: 57 Year
  Sex: Female

DRUGS (7)
  1. MERSYNDOL [Suspect]
     Indication: PAIN
  2. NEXIUM [Suspect]
     Indication: REFLUX OESOPHAGITIS
  3. PREMARIN [Suspect]
     Indication: MENOPAUSE
     Dosage: 0.625 MG, UNK
  4. MOGADON [Suspect]
     Dosage: TWO AT NIGHT
  5. VALIUM [Suspect]
     Indication: STRESS
     Dosage: FOUR TABLETS A DAY
  6. MERSYNDOL [Suspect]
     Indication: HEADACHE
     Dosage: TWO TO NINE TABLETS A DAY
  7. OXYCONTIN [Suspect]

REACTIONS (2)
  - INTENTIONAL OVERDOSE [None]
  - SUICIDE ATTEMPT [None]
